FAERS Safety Report 5032637-3 (Version None)
Quarter: 2006Q2

REPORT INFORMATION
  Report Type: 
  Country: None (occurrence: None)
  Receive Date: 20060620
  Receipt Date: 20060607
  Transmission Date: 20061013
  Serious: Yes (Other)
  Sender: FDA-Public Use
  Company Number: 2006073825

PATIENT
  Age: 61 Year
  Sex: Female
  Weight: 48.0813 kg

DRUGS (3)
  1. SOLU-CORTEF [Suspect]
     Indication: ANAPHYLAXIS PROPHYLAXIS
     Dosage: 120 MG (40 MG, 3 IN 1 D), INTRAVENOUS
     Route: 042
     Dates: start: 20060522, end: 20060606
  2. AZACTAM (AZTRENOAM) [Concomitant]
  3. INDERAL [Concomitant]

REACTIONS (2)
  - HALO VISION [None]
  - VISUAL DISTURBANCE [None]
